FAERS Safety Report 21520119 (Version 2)
Quarter: 2023Q1

REPORT INFORMATION
  Report Type: Report from Study
  Country: US (occurrence: US)
  Receive Date: 20221028
  Receipt Date: 20230327
  Transmission Date: 20230417
  Serious: No
  Sender: FDA-Public Use
  Company Number: US-ABBVIE-4179315

PATIENT
  Sex: Female

DRUGS (7)
  1. HUMIRA [Suspect]
     Active Substance: ADALIMUMAB
     Indication: Colitis ulcerative
     Route: 058
     Dates: start: 20220614, end: 202212
  2. TOPIRAMATE [Concomitant]
     Active Substance: TOPIRAMATE
     Indication: Cluster headache
     Dosage: TOPIRAMATE START DATE:  2000 OR 2001
  3. TRAZODONE [Concomitant]
     Active Substance: TRAZODONE HYDROCHLORIDE
     Indication: Crying
     Dates: start: 2013
  4. VALACYCLOVIR [Concomitant]
     Active Substance: VALACYCLOVIR HYDROCHLORIDE
     Indication: Eczema
     Dates: start: 2000
  5. RITALIN [Concomitant]
     Active Substance: METHYLPHENIDATE HYDROCHLORIDE
     Indication: Attention deficit hyperactivity disorder
     Dosage: TIME INTERVAL: 0.33333333 DAYS
     Route: 048
     Dates: start: 1992
  6. PROPRANOLOL [Concomitant]
     Active Substance: PROPRANOLOL HYDROCHLORIDE
     Indication: Tremor
     Dosage: PROPRANOLOL START DATE: 1993 OR 1994
  7. HYOSCYAMINE [Concomitant]
     Active Substance: HYOSCYAMINE
     Indication: Colitis ulcerative
     Dates: start: 2022

REACTIONS (14)
  - Amnesia [Unknown]
  - Ulcer [Unknown]
  - Somnolence [Unknown]
  - Unevaluable event [Unknown]
  - Headache [Unknown]
  - Asthenia [Unknown]
  - Weight decreased [Unknown]
  - Gait disturbance [Unknown]
  - Fatigue [Unknown]
  - Pyrexia [Unknown]
  - Confusional state [Unknown]
  - Dizziness [Unknown]
  - Eczema [Unknown]
  - Hallucination [Unknown]
